FAERS Safety Report 13366098 (Version 1)
Quarter: 2017Q1

REPORT INFORMATION
  Report Type: Spontaneous
  Country: US (occurrence: US)
  Receive Date: 20170323
  Receipt Date: 20170323
  Transmission Date: 20170429
  Serious: No
  Sender: FDA-Public Use
  Company Number: US-ALLERGAN-1706548US

PATIENT
  Sex: Male

DRUGS (1)
  1. VIBERZI [Suspect]
     Active Substance: ELUXADOLINE
     Indication: VIRAL DIARRHOEA
     Route: 048

REACTIONS (3)
  - Muscle spasms [Recovered/Resolved]
  - Constipation [Recovered/Resolved]
  - Off label use [Unknown]
